FAERS Safety Report 25659061 (Version 1)
Quarter: 2025Q3

REPORT INFORMATION
  Report Type: Report from Study
  Country: US (occurrence: US)
  Receive Date: 20250808
  Receipt Date: 20250808
  Transmission Date: 20251021
  Serious: Yes (Other)
  Sender: ASTELLAS
  Company Number: US-ASTELLAS-2025-AER-042270

PATIENT
  Sex: Female

DRUGS (1)
  1. FEZOLINETANT [Suspect]
     Active Substance: FEZOLINETANT
     Indication: Product used for unknown indication
     Route: 065

REACTIONS (6)
  - Liver disorder [Unknown]
  - Anxiety [Unknown]
  - Stress [Unknown]
  - Chronic obstructive pulmonary disease [Unknown]
  - Hot flush [Unknown]
  - Off label use [Unknown]
